FAERS Safety Report 7018781-X (Version None)
Quarter: 2010Q3

REPORT INFORMATION
  Report Type: 
  Country: None (occurrence: None)
  Receive Date: 20100928
  Receipt Date: 20100917
  Transmission Date: 20110219
  Serious: Yes (Hospitalization, Other)
  Sender: FDA-Public Use
  Company Number: PHHY2010US62152

PATIENT
  Sex: Female
  Weight: 62.87 kg

DRUGS (2)
  1. EXJADE [Suspect]
     Indication: SICKLE CELL ANAEMIA
     Dosage: 1250 MG DAILY
     Route: 048
     Dates: start: 20100719
  2. BACTRIM [Concomitant]

REACTIONS (3)
  - INFECTION [None]
  - PYREXIA [None]
  - URINE COLOUR ABNORMAL [None]
